FAERS Safety Report 21970398 (Version 1)
Quarter: 2023Q1

REPORT INFORMATION
  Report Type: Report from Study
  Country: CH (occurrence: CH)
  Receive Date: 20230209
  Receipt Date: 20230209
  Transmission Date: 20230417
  Serious: Yes (Death)
  Sender: FDA-Public Use
  Company Number: CH-ABBVIE-4162387

PATIENT
  Age: 70 Year
  Sex: Female

DRUGS (2)
  1. CARBIDOPA\LEVODOPA [Suspect]
     Active Substance: CARBIDOPA\LEVODOPA
     Indication: Parkinson^s disease
     Route: 050
     Dates: start: 20120618
  2. CARBIDOPA\LEVODOPA [Suspect]
     Active Substance: CARBIDOPA\LEVODOPA
     Dosage: MD: 5.2 ML, CRD: 2 ML/H, CRN: 0 ML/H, ED: 1.0 ML
     Route: 050
     Dates: start: 20221011, end: 20230205

REACTIONS (3)
  - Death [Fatal]
  - General physical health deterioration [Not Recovered/Not Resolved]
  - Device dislocation [Unknown]

NARRATIVE: CASE EVENT DATE: 20230205
